FAERS Safety Report 15515508 (Version 3)
Quarter: 2019Q1

REPORT INFORMATION
  Report Type: Spontaneous
  Country: US (occurrence: US)
  Receive Date: 20181017
  Receipt Date: 20190219
  Transmission Date: 20190417
  Serious: No
  Sender: FDA-Public Use
  Company Number: US-HTU-2018US017638

PATIENT
  Age: 87 Year
  Sex: Male

DRUGS (3)
  1. VALCHLOR [Suspect]
     Active Substance: MECHLORETHAMINE
     Indication: MYCOSIS FUNGOIDES
     Dosage: A THIN FILM, QD
     Route: 061
     Dates: start: 20180829
  2. VALCHLOR [Suspect]
     Active Substance: MECHLORETHAMINE
     Dosage: UNK, UNKNOWN
     Route: 061
     Dates: start: 20180922
  3. VALCHLOR [Suspect]
     Active Substance: MECHLORETHAMINE
     Dosage: THIN FILM, QD

REACTIONS (10)
  - Pain of skin [Unknown]
  - Application site discolouration [Unknown]
  - Skin warm [Unknown]
  - Product storage error [Unknown]
  - Application site erythema [Unknown]
  - Erythema [Unknown]
  - Application site swelling [Unknown]
  - Skin weeping [Unknown]
  - Pruritus [Unknown]
  - Blister [Unknown]

NARRATIVE: CASE EVENT DATE: 20180922
